FAERS Safety Report 18034166 (Version 1)
Quarter: 2020Q3

REPORT INFORMATION
  Report Type: Spontaneous
  Country: CN (occurrence: CN)
  Receive Date: 20200716
  Receipt Date: 20200716
  Transmission Date: 20201103
  Serious: Yes (Hospitalization, Other)
  Sender: FDA-Public Use
  Company Number: CN-BAUSCH-BL-2020-020200

PATIENT
  Age: 53 Year
  Sex: Female

DRUGS (5)
  1. LEVOFLOXACIN. [Suspect]
     Active Substance: LEVOFLOXACIN
     Indication: HAEMORRHOIDS
     Route: 065
  2. METRONIDAZOLE. [Suspect]
     Active Substance: METRONIDAZOLE
     Indication: HAEMORRHOIDS
     Route: 065
  3. HYDROXYCHLOROQUINE [Suspect]
     Active Substance: HYDROXYCHLOROQUINE
     Indication: CONNECTIVE TISSUE DISORDER
     Dosage: IRREGULARLY
     Route: 065
  4. CEFOXITIN [Suspect]
     Active Substance: CEFOXITIN SODIUM
     Indication: HAEMORRHOIDS
     Route: 065
  5. PREDNISONE. [Concomitant]
     Active Substance: PREDNISONE
     Indication: CONNECTIVE TISSUE DISORDER
     Dosage: IRREGULARLY FOR A LONG TIME

REACTIONS (2)
  - Granulocytopenia [Recovering/Resolving]
  - Fixed eruption [Recovering/Resolving]
